FAERS Safety Report 8428119-9 (Version None)
Quarter: 2012Q2

REPORT INFORMATION
  Report Type: 
  Country: None (occurrence: None)
  Receive Date: 20120611
  Receipt Date: 20120531
  Transmission Date: 20120825
  Serious: Yes (Hospitalization)
  Sender: FDA-Public Use
  Company Number: IE-MEDIMMUNE-MEDI-0015126

PATIENT
  Age: 4 Month
  Sex: Male

DRUGS (3)
  1. SYNAGIS [Suspect]
     Indication: PREMATURE BABY
     Route: 030
     Dates: start: 20111111
  2. ERGOCALCIFEROL [Concomitant]
  3. FERROUS SULFATE TAB [Concomitant]

REACTIONS (3)
  - RHINORRHOEA [None]
  - BRONCHIOLITIS [None]
  - COUGH [None]
